FAERS Safety Report 17017848 (Version 2)
Quarter: 2019Q4

REPORT INFORMATION
  Report Type: Report from Study
  Country: US (occurrence: US)
  Receive Date: 20191111
  Receipt Date: 20191119
  Transmission Date: 20200122
  Serious: Yes (Hospitalization)
  Sender: FDA-Public Use
  Company Number: US-EISAI MEDICAL RESEARCH-EC-2019-063444

PATIENT
  Age: 57 Year
  Sex: Male
  Weight: 119 kg

DRUGS (8)
  1. LENVIMA [Suspect]
     Active Substance: LENVATINIB
     Indication: HEPATOCELLULAR CARCINOMA
     Route: 048
     Dates: start: 20190930, end: 2019
  2. LACTULOSE. [Concomitant]
     Active Substance: LACTULOSE
  3. NOVOLOG [Concomitant]
     Active Substance: INSULIN ASPART
  4. LENVIMA [Suspect]
     Active Substance: LENVATINIB
     Route: 048
     Dates: start: 2019
  5. OMEGA 3-6-9 [Concomitant]
     Active Substance: FISH OIL
  6. LEVOTHYROXINE. [Concomitant]
     Active Substance: LEVOTHYROXINE
  7. BASAGLAR [Concomitant]
     Active Substance: INSULIN GLARGINE
  8. MULTIVITAMIN [Concomitant]
     Active Substance: VITAMINS

REACTIONS (6)
  - Nausea [Unknown]
  - Blood pressure increased [Not Recovered/Not Resolved]
  - Constipation [Unknown]
  - Rash [Unknown]
  - Ammonia increased [Unknown]
  - Intestinal obstruction [Unknown]

NARRATIVE: CASE EVENT DATE: 2019
